FAERS Safety Report 7705565-X (Version None)
Quarter: 2011Q3

REPORT INFORMATION
  Report Type: 
  Country: None (occurrence: None)
  Receive Date: 20110823
  Receipt Date: 20110823
  Transmission Date: 20111222
  Serious: Yes (Hospitalization)
  Sender: FDA-Public Use
  Company Number: None

PATIENT
  Age: 63 Year
  Sex: Male
  Weight: 103 kg

DRUGS (2)
  1. LITHIUM CARBONATE [Suspect]
     Indication: POST-TRAUMATIC STRESS DISORDER
     Dosage: 1200 MG AT BEDTIME PO
     Route: 048
     Dates: start: 20000310, end: 20110602
  2. LITHIUM CARBONATE [Suspect]
     Indication: BIPOLAR I DISORDER
     Dosage: 1200 MG AT BEDTIME PO
     Route: 048
     Dates: start: 20000310, end: 20110602

REACTIONS (8)
  - CONFUSIONAL STATE [None]
  - ANXIETY [None]
  - TOXICITY TO VARIOUS AGENTS [None]
  - LETHARGY [None]
  - AGITATION [None]
  - SEDATION [None]
  - HYPERSOMNIA [None]
  - ELECTROCARDIOGRAM ABNORMAL [None]
